FAERS Safety Report 24628879 (Version 2)
Quarter: 2024Q4

REPORT INFORMATION
  Report Type: Spontaneous
  Country: US (occurrence: US)
  Receive Date: 20241118
  Receipt Date: 20241120
  Transmission Date: 20250114
  Serious: No
  Sender: ELI LILLY AND COMPANY
  Company Number: US-ELI_LILLY_AND_COMPANY-US202411010100

PATIENT
  Age: 73 Year
  Sex: Female

DRUGS (2)
  1. TERIPARATIDE [Suspect]
     Active Substance: TERIPARATIDE
     Indication: Osteoporosis
     Dosage: UNK UNK, UNKNOWN
     Route: 065
     Dates: start: 202307
  2. TERIPARATIDE [Suspect]
     Active Substance: TERIPARATIDE
     Dosage: 20 UG, UNKNOWN
     Route: 058
     Dates: start: 20241114

REACTIONS (3)
  - Visual impairment [Unknown]
  - Dental operation [Unknown]
  - Product dose omission issue [Unknown]
